FAERS Safety Report 8486945 (Version 2)
Quarter: 2012Q4

REPORT INFORMATION
  Report Type: 
  Country: RU (occurrence: RU)
  Receive Date: 20120402
  Receipt Date: 20121119
  Transmission Date: 20130627
  Serious: Yes (Other)
  Sender: FDA-Public Use
  Company Number: RU-ROCHE-1054139

PATIENT
  Age: 45 Year
  Sex: Female
  Weight: 79 kg

DRUGS (3)
  1. XENICAL [Suspect]
     Indication: OVERWEIGHT
     Route: 048
     Dates: start: 20111104, end: 20120228
  2. ACTOVEGIN [Concomitant]
  3. RIBOXINE [Concomitant]

REACTIONS (7)
  - Gastrointestinal disorder [Not Recovered/Not Resolved]
  - Peritonitis [Recovered/Resolved]
  - Weight increased [Not Recovered/Not Resolved]
  - Drug ineffective [Recovered/Resolved]
  - Nausea [Recovered/Resolved]
  - Steatorrhoea [Recovered/Resolved]
  - Abdominal distension [Recovered/Resolved]
